FAERS Safety Report 10972483 (Version 3)
Quarter: 2015Q2

REPORT INFORMATION
  Report Type: Spontaneous
  Country: QA (occurrence: US)
  Receive Date: 20150331
  Receipt Date: 20150505
  Transmission Date: 20150821
  Serious: Yes (Other)
  Sender: FDA-Public Use
  Company Number: US-009507513-1503USA013596

PATIENT
  Age: 71 Year
  Sex: Female
  Weight: 110 kg

DRUGS (21)
  1. ELAVIL [Suspect]
     Active Substance: AMITRIPTYLINE HYDROCHLORIDE
     Indication: DEPRESSION
     Dosage: UNK
     Route: 048
     Dates: start: 1977
  2. ADVIL [Suspect]
     Active Substance: IBUPROFEN
     Indication: HEADACHE
     Dosage: 2-4 TABLETS AS NEEDED
     Route: 048
     Dates: start: 201501
  3. ACETAMINOPHEN. [Concomitant]
     Active Substance: ACETAMINOPHEN
  4. NITROSTAT [Concomitant]
     Active Substance: NITROGLYCERIN
     Indication: OESOPHAGEAL SPASM
     Dosage: 1/150 G
  5. HYDROCHLOROTHIAZIDE. [Suspect]
     Active Substance: HYDROCHLOROTHIAZIDE
     Indication: PERIPHERAL SWELLING
     Dosage: 12.5-25 MG OCCASIONALLY
     Route: 048
  6. MOTRIN [Suspect]
     Active Substance: IBUPROFEN
     Indication: HEADACHE
     Dosage: UNK
  7. AMLODIPINE [Concomitant]
     Active Substance: AMLODIPINE BESYLATE
     Indication: HYPERTENSION
     Dosage: 10 MG, QD
  8. PRINIVIL [Suspect]
     Active Substance: LISINOPRIL
     Indication: HYPERTENSION
     Dosage: 20 MG, BID
     Route: 048
  9. NEOSPORIN H [Concomitant]
     Indication: PRURITUS
  10. PROMETHAZINE HYDROCHLORIDE. [Concomitant]
     Active Substance: PROMETHAZINE HYDROCHLORIDE
     Indication: NAUSEA
  11. OXYCONTIN [Concomitant]
     Active Substance: OXYCODONE HYDROCHLORIDE
     Indication: BACK PAIN
     Dosage: 50 MG, TID
  12. CITALOPRAM [Suspect]
     Active Substance: CITALOPRAM HYDROBROMIDE
     Indication: DEPRESSION
     Dosage: UNK
  13. VITAMIN D [Concomitant]
     Active Substance: CHOLECALCIFEROL
  14. CALCIUM (UNSPECIFIED) [Concomitant]
     Active Substance: CALCIUM
  15. ALOE VERA [Concomitant]
     Active Substance: ALOE VERA LEAF
  16. COZAAR [Suspect]
     Active Substance: LOSARTAN POTASSIUM
     Indication: HYPERTENSION
     Dosage: 100 MG, QD
     Route: 048
  17. CLOBETASOL PROPIONATE. [Suspect]
     Active Substance: CLOBETASOL PROPIONATE
     Indication: RASH
     Dosage: UNK, PRN
     Route: 061
     Dates: start: 201501
  18. ZINC (UNSPECIFIED) [Concomitant]
  19. ISOSORBIDE [Concomitant]
     Active Substance: ISOSORBIDE
     Indication: HYPERTENSION
     Dosage: 120 MG, HS
  20. ISOSORBIDE [Concomitant]
     Active Substance: ISOSORBIDE
     Indication: HYPERTENSION
     Dosage: 30 MG, PRN
  21. MAGNESIUM (UNSPECIFIED) [Concomitant]
     Active Substance: MAGNESIUM

REACTIONS (15)
  - Pollakiuria [Unknown]
  - Endodontic procedure [Unknown]
  - Artificial crown procedure [Unknown]
  - Skin exfoliation [Recovering/Resolving]
  - Rash erythematous [Not Recovered/Not Resolved]
  - Pruritus [Recovering/Resolving]
  - Foot deformity [Recovered/Resolved]
  - Pain in jaw [Unknown]
  - Weight increased [Not Recovered/Not Resolved]
  - Blister [Recovering/Resolving]
  - Influenza like illness [Recovered/Resolved]
  - Renal artery stent placement [Unknown]
  - Gastrointestinal disorder [Recovered/Resolved]
  - Weight decreased [Recovered/Resolved]
  - Skin discolouration [Not Recovered/Not Resolved]

NARRATIVE: CASE EVENT DATE: 2014
